FAERS Safety Report 6599708-1 (Version None)
Quarter: 2010Q1

REPORT INFORMATION
  Report Type: 
  Country: None (occurrence: None)
  Receive Date: 20100224
  Receipt Date: 20100219
  Transmission Date: 20100710
  Serious: Yes (Death)
  Sender: FDA-Public Use
  Company Number: PT-CELGENEUS-130-C5013-10021773

PATIENT
  Sex: Male

DRUGS (14)
  1. THALIDOMIDE [Suspect]
     Indication: MULTIPLE MYELOMA
     Route: 048
     Dates: start: 20090407, end: 20100210
  2. THALIDOMIDE [Suspect]
     Route: 048
     Dates: start: 20090403, end: 20090406
  3. THALIDOMIDE [Suspect]
     Route: 048
     Dates: start: 20090325, end: 20090402
  4. CYCLOPHOSPHAMIDE [Suspect]
     Indication: MULTIPLE MYELOMA
     Route: 051
     Dates: start: 20100106
  5. CYCLOPHOSPHAMIDE [Suspect]
     Route: 051
     Dates: start: 20091219, end: 20100105
  6. CYCLOPHOSPHAMIDE [Suspect]
     Route: 051
     Dates: start: 20091106, end: 20091204
  7. DEXAMETHASONE [Suspect]
     Indication: MULTIPLE MYELOMA
     Route: 065
  8. SINTROM [Concomitant]
     Indication: PROPHYLAXIS
     Route: 065
  9. EPO [Concomitant]
     Route: 058
  10. FOLIC ACID [Concomitant]
     Route: 048
  11. OMEPRAZOLE [Concomitant]
     Indication: DRUG USE FOR UNKNOWN INDICATION
     Route: 048
  12. ACENOCOUMAROL [Concomitant]
     Indication: ATRIAL FIBRILLATION
     Route: 048
  13. PAROXETINE HCL [Concomitant]
     Indication: DEPRESSION
     Route: 065
  14. RISPERIDONE [Concomitant]
     Indication: DEPRESSION
     Route: 065

REACTIONS (1)
  - CARDIO-RESPIRATORY ARREST [None]
